FAERS Safety Report 6922697-4 (Version None)
Quarter: 2010Q3

REPORT INFORMATION
  Report Type: 
  Country: None (occurrence: None)
  Receive Date: 20100813
  Receipt Date: 20100804
  Transmission Date: 20110219
  Serious: Yes (Other)
  Sender: FDA-Public Use
  Company Number: PHHY2010AU51403

PATIENT
  Sex: Male

DRUGS (3)
  1. RITALIN [Suspect]
     Dosage: UNK
  2. QUETIAPINE [Concomitant]
     Dosage: UNK
     Dates: start: 20090101
  3. RISPERDAL [Concomitant]
     Dosage: INTERMITTENTLY

REACTIONS (1)
  - EJECTION FRACTION DECREASED [None]
